FAERS Safety Report 5717135-3 (Version None)
Quarter: 2008Q2

REPORT INFORMATION
  Report Type: 
  Country: None (occurrence: None)
  Receive Date: 20080424
  Receipt Date: 20080414
  Transmission Date: 20081010
  Serious: Yes (Hospitalization, Other)
  Sender: FDA-Public Use
  Company Number: US-PFIZER INC-2008032772

PATIENT
  Sex: Male

DRUGS (5)
  1. LIPITOR [Suspect]
     Indication: HYPERCHOLESTEROLAEMIA
     Route: 048
  2. PLAVIX [Suspect]
     Indication: STENT PLACEMENT
     Route: 048
     Dates: start: 20060101, end: 20080313
  3. HUMULIN R [Concomitant]
     Indication: TYPE 2 DIABETES MELLITUS
     Route: 058
  4. HUMULIN 70/30 [Concomitant]
     Indication: TYPE 2 DIABETES MELLITUS
  5. ALL OTHER THERAPEUTIC PRODUCTS [Concomitant]

REACTIONS (2)
  - HEPATIC CIRRHOSIS [None]
  - OESOPHAGEAL HAEMORRHAGE [None]
